FAERS Safety Report 19604338 (Version 11)
Quarter: 2022Q4

REPORT INFORMATION
  Report Type: Report from Study
  Country: CO (occurrence: CO)
  Receive Date: 20210723
  Receipt Date: 20221003
  Transmission Date: 20230113
  Serious: Yes (Hospitalization, Other)
  Sender: FDA-Public Use
  Company Number: PHHY2018CO073919

PATIENT
  Age: 68 Year
  Sex: Female

DRUGS (3)
  1. SANDOSTATIN LAR DEPOT [Suspect]
     Active Substance: OCTREOTIDE ACETATE
     Indication: Acromegaly
     Dosage: 30 MG, QMO (FORMULATION: AMPOULE)
     Route: 030
     Dates: start: 20180210
  2. SANDOSTATIN LAR DEPOT [Suspect]
     Active Substance: OCTREOTIDE ACETATE
     Dosage: 30 MG, QMO
     Route: 030
  3. SANDOSTATIN LAR DEPOT [Suspect]
     Active Substance: OCTREOTIDE ACETATE

REACTIONS (14)
  - General physical health deterioration [Unknown]
  - Colon injury [Unknown]
  - Abdominal pain [Unknown]
  - Malaise [Unknown]
  - Colon cancer [Unknown]
  - Gastritis [Unknown]
  - Dizziness [Unknown]
  - Limb discomfort [Unknown]
  - Vomiting [Unknown]
  - Alopecia [Unknown]
  - Gait disturbance [Unknown]
  - Needle issue [Unknown]
  - Illness [Unknown]
  - Functional gastrointestinal disorder [Unknown]

NARRATIVE: CASE EVENT DATE: 20220613
